FAERS Safety Report 19183425 (Version 2)
Quarter: 2021Q2

REPORT INFORMATION
  Report Type: Spontaneous
  Country: US (occurrence: US)
  Receive Date: 20210427
  Receipt Date: 20210609
  Transmission Date: 20210717
  Serious: No
  Sender: FDA-Public Use
  Company Number: US-SA-2021SA124638

PATIENT
  Age: 68 Year
  Sex: Female

DRUGS (1)
  1. LANTUS [Suspect]
     Active Substance: INSULIN GLARGINE
     Indication: TYPE 1 DIABETES MELLITUS
     Dosage: 31 UNITS ONCE DAILY
     Route: 065
     Dates: start: 202007

REACTIONS (3)
  - Rhinorrhoea [Unknown]
  - Throat clearing [Unknown]
  - Hypersensitivity [Unknown]
